FAERS Safety Report 11818779 (Version 1)
Quarter: 2015Q4

REPORT INFORMATION
  Report Type: Spontaneous
  Country: US (occurrence: None)
  Receive Date: 20151209
  Receipt Date: 20151209
  Transmission Date: 20160305
  Serious: Yes (Hospitalization)
  Sender: FDA-Public Use
  Company Number: None

PATIENT
  Age: 85 Year
  Sex: Female
  Weight: 73.5 kg

DRUGS (11)
  1. PRADAXA [Suspect]
     Active Substance: DABIGATRAN ETEXILATE MESYLATE
     Indication: ATRIAL FIBRILLATION
     Dosage: CHRONIC X 3-4 MONTHS
     Route: 048
  2. ZESTRIL [Concomitant]
     Active Substance: LISINOPRIL
  3. FISH OIL [Concomitant]
     Active Substance: FISH OIL
  4. K-DUR [Concomitant]
     Active Substance: POTASSIUM CHLORIDE
  5. DRISDOL [Concomitant]
     Active Substance: ERGOCALCIFEROL
  6. LUMIGAN [Concomitant]
     Active Substance: BIMATOPROST
  7. TAMBOCOR [Concomitant]
     Active Substance: FLECAINIDE ACETATE
  8. MAG-OX [Concomitant]
     Active Substance: MAGNESIUM OXIDE
  9. ASPIRIN. [Suspect]
     Active Substance: ASPIRIN
     Indication: ATRIAL FIBRILLATION
     Dosage: CHRONIC
     Route: 048
  10. LEXAPRO [Concomitant]
     Active Substance: ESCITALOPRAM OXALATE
  11. HYDRODIURIL [Concomitant]
     Active Substance: HYDROCHLOROTHIAZIDE

REACTIONS (4)
  - Gastric haemorrhage [None]
  - Arteriovenous malformation [None]
  - Anaemia [None]
  - Gastritis erosive [None]

NARRATIVE: CASE EVENT DATE: 20150625
